FAERS Safety Report 6713374-3 (Version None)
Quarter: 2010Q2

REPORT INFORMATION
  Report Type: 
  Country: None (occurrence: None)
  Receive Date: 20100506
  Receipt Date: 20100423
  Transmission Date: 20101027
  Serious: Yes (Death, Other)
  Sender: FDA-Public Use
  Company Number: US-TEVA-005299

PATIENT
  Age: 61 Year
  Sex: Female

DRUGS (3)
  1. MEDROXYPROGESTERONE ACETATE [Suspect]
     Indication: MENOPAUSAL SYMPTOMS
     Route: 048
     Dates: start: 19870101, end: 20030101
  2. PROVERA [Suspect]
     Route: 048
     Dates: start: 19870101, end: 20030101
  3. PREMARIN [Suspect]
     Route: 048
     Dates: start: 19870101, end: 20030101

REACTIONS (1)
  - BREAST CANCER [None]
